FAERS Safety Report 6292696-7 (Version None)
Quarter: 2009Q3

REPORT INFORMATION
  Report Type: 
  Country: None (occurrence: None)
  Receive Date: 20090731
  Receipt Date: 20090724
  Transmission Date: 20100115
  Serious: Yes (Hospitalization)
  Sender: FDA-Public Use
  Company Number: A0777773A

PATIENT
  Sex: Male
  Weight: 31 kg

DRUGS (9)
  1. ADVAIR HFA [Suspect]
     Indication: ASTHMA
     Dosage: 1PUFF TWICE PER DAY
     Route: 055
  2. ADVAIR HFA [Suspect]
     Dosage: 2PUFF TWICE PER DAY
     Route: 055
  3. SINGULAIR [Concomitant]
  4. ALBUTEROL [Concomitant]
  5. TRIAMCINOLONE [Concomitant]
  6. XOPENEX [Concomitant]
  7. FLONASE [Concomitant]
  8. RHINOCORT [Concomitant]
  9. NASACORT [Concomitant]

REACTIONS (2)
  - ASTHMA [None]
  - PNEUMONIA [None]
